FAERS Safety Report 16902746 (Version 1)
Quarter: 2019Q4

REPORT INFORMATION
  Report Type: Spontaneous
  Country: US (occurrence: US)
  Receive Date: 20190816
  Receipt Date: 20190816
  Transmission Date: 20200122
  Serious: No
  Sender: FDA-Public Use
  Company Number: None

PATIENT
  Age: 71 Year
  Sex: Male

DRUGS (2)
  1. ZYTIGA [Concomitant]
     Active Substance: ABIRATERONE ACETATE
  2. PREDNISONE 5 MG TAB [Suspect]
     Active Substance: PREDNISONE
     Dates: start: 201710, end: 20190625

REACTIONS (1)
  - Hospice care [None]

NARRATIVE: CASE EVENT DATE: 20190816
